FAERS Safety Report 5068783-8 (Version None)
Quarter: 2006Q3

REPORT INFORMATION
  Report Type: 
  Country: None (occurrence: None)
  Receive Date: 20060802
  Receipt Date: 20060330
  Transmission Date: 20061208
  Serious: No
  Sender: FDA-Public Use
  Company Number: US-BRISTOL-MYERS SQUIBB COMPANY-13331483

PATIENT
  Sex: Female

DRUGS (3)
  1. COUMADIN [Suspect]
     Dates: start: 20060329
  2. METFORMIN HYDROCHLORIDE [Concomitant]
  3. GLYBURIDE [Concomitant]

REACTIONS (1)
  - ABDOMINAL DISCOMFORT [None]
